FAERS Safety Report 7785256-X (Version None)
Quarter: 2011Q3

REPORT INFORMATION
  Report Type: 
  Country: None (occurrence: None)
  Receive Date: 20110929
  Receipt Date: 20110927
  Transmission Date: 20111222
  Serious: Yes (Death)
  Sender: FDA-Public Use
  Company Number: PHHY2011CL85037

PATIENT
  Sex: Male

DRUGS (2)
  1. LAMICTAL [Concomitant]
  2. CLOZAPINE [Suspect]
     Indication: SCHIZOPHRENIA
     Dosage: 100 MG / DAY
     Dates: start: 20041005

REACTIONS (4)
  - RECTAL CANCER [None]
  - CARDIOPULMONARY FAILURE [None]
  - COLON CANCER [None]
  - METASTASES TO LUNG [None]
